FAERS Safety Report 5912078-4 (Version None)
Quarter: 2008Q4

REPORT INFORMATION
  Report Type: 
  Country: None (occurrence: None)
  Receive Date: 20081006
  Receipt Date: 20080919
  Transmission Date: 20090506
  Serious: Yes (Hospitalization)
  Sender: FDA-Public Use
  Company Number: 2008EU001573

PATIENT
  Sex: Male

DRUGS (1)
  1. VESICARE [Suspect]
     Indication: POLLAKIURIA
     Dosage: 10 MG, /D, ORAL
     Route: 048

REACTIONS (2)
  - CHEST PAIN [None]
  - DYSPNOEA EXERTIONAL [None]
